FAERS Safety Report 18991394 (Version 4)
Quarter: 2022Q2

REPORT INFORMATION
  Report Type: Spontaneous
  Country: US (occurrence: US)
  Receive Date: 20210310
  Receipt Date: 20220527
  Transmission Date: 20220720
  Serious: Yes (Hospitalization, Other)
  Sender: FDA-Public Use
  Company Number: US-SA-SAC20210309000634

PATIENT
  Age: 3 Year
  Sex: Female

DRUGS (2)
  1. LUMIZYME [Suspect]
     Active Substance: ALGLUCOSIDASE ALFA
     Indication: Glycogen storage disease type II
     Dosage: 550 MG, QW
     Route: 042
     Dates: start: 20180907
  2. LUMIZYME [Suspect]
     Active Substance: ALGLUCOSIDASE ALFA
     Dosage: 500 MG, QW
     Route: 042
     Dates: start: 202002

REACTIONS (6)
  - Bacteraemia [Unknown]
  - Pyrexia [Unknown]
  - Hospitalisation [Not Recovered/Not Resolved]
  - Fungaemia [Unknown]
  - Product dose omission issue [Unknown]
  - Product use issue [Unknown]

NARRATIVE: CASE EVENT DATE: 20200201
